FAERS Safety Report 16117996 (Version 2)
Quarter: 2022Q2

REPORT INFORMATION
  Report Type: Report from Study
  Country: IT (occurrence: IT)
  Receive Date: 20190326
  Receipt Date: 20220414
  Transmission Date: 20220720
  Serious: Yes (Other)
  Sender: FDA-Public Use
  Company Number: None

PATIENT
  Age: 50 Year
  Sex: Male

DRUGS (1)
  1. HALOPERIDOL DECANOATE [Suspect]
     Active Substance: HALOPERIDOL DECANOATE
     Indication: Schizoaffective disorder
     Dosage: 300 MG TOTAL
     Route: 030
     Dates: start: 20180801, end: 20180930

REACTIONS (6)
  - Hypertonia [Recovering/Resolving]
  - Apraxia [Recovering/Resolving]
  - Asthenia [Recovering/Resolving]
  - Parkinsonism [Recovering/Resolving]
  - Muscle rigidity [Recovering/Resolving]
  - Extrapyramidal disorder [Recovering/Resolving]

NARRATIVE: CASE EVENT DATE: 20181012
